FAERS Safety Report 11698540 (Version 2)
Quarter: 2015Q4

REPORT INFORMATION
  Report Type: Spontaneous
  Country: US (occurrence: US)
  Receive Date: 20151104
  Receipt Date: 20151109
  Transmission Date: 20160304
  Serious: No
  Sender: FDA-Public Use
  Company Number: US-TEVA-603965USA

PATIENT
  Sex: Female

DRUGS (2)
  1. NUVIGIL [Suspect]
     Active Substance: ARMODAFINIL
     Indication: DISTURBANCE IN ATTENTION
  2. NUVIGIL [Suspect]
     Active Substance: ARMODAFINIL
     Indication: MEMORY IMPAIRMENT
     Route: 048
     Dates: start: 20151019

REACTIONS (4)
  - Insomnia [Unknown]
  - Product use issue [Unknown]
  - Psychomotor hyperactivity [Not Recovered/Not Resolved]
  - Feeling abnormal [Not Recovered/Not Resolved]

NARRATIVE: CASE EVENT DATE: 20151019
